FAERS Safety Report 4359981-7 (Version None)
Quarter: 2004Q2

REPORT INFORMATION
  Report Type: 
  Country: None (occurrence: None)
  Receive Date: 20040518
  Receipt Date: 20040518
  Transmission Date: 20050107
  Serious: Yes (Other)
  Sender: FDA-Public Use
  Company Number: None

PATIENT
  Age: 43 Year
  Sex: Male
  Weight: 90.7194 kg

DRUGS (1)
  1. EFFEXOR XR [Suspect]
     Indication: ATTENTION DEFICIT/HYPERACTIVITY DISORDER
     Dosage: 150MG PER DAY ORAL
     Route: 048
     Dates: start: 20030501, end: 20040501

REACTIONS (3)
  - HANGOVER [None]
  - JUDGEMENT IMPAIRED [None]
  - MOBILITY DECREASED [None]
